FAERS Safety Report 9364522 (Version 3)
Quarter: 2013Q3

REPORT INFORMATION
  Report Type: Spontaneous
  Country: JP (occurrence: JP)
  Receive Date: 20130624
  Receipt Date: 20130903
  Transmission Date: 20140515
  Serious: Yes (Life-Threatening, Hospitalization)
  Sender: FDA-Public Use
  Company Number: JP-PFIZER INC-2013184270

PATIENT
  Age: 6 Decade
  Sex: Female

DRUGS (2)
  1. HALCION [Suspect]
     Indication: SUICIDE ATTEMPT
     Dosage: 300 MG, SINGLE
     Route: 048
  2. HIRNAMIN [Suspect]
     Indication: SUICIDE ATTEMPT
     Dosage: 910 MG, SINGLE

REACTIONS (5)
  - Overdose [Unknown]
  - Coma [Recovered/Resolved]
  - Dyskinesia [Recovering/Resolving]
  - Dyslalia [Recovering/Resolving]
  - Deep vein thrombosis [Recovering/Resolving]
